FAERS Safety Report 10307849 (Version 4)
Quarter: 2014Q4

REPORT INFORMATION
  Report Type: Spontaneous
  Country: US (occurrence: US)
  Receive Date: 20140716
  Receipt Date: 20141023
  Transmission Date: 20150528
  Serious: No
  Sender: FDA-Public Use
  Company Number: US-PFIZER INC-2014195338

PATIENT
  Age: 69 Year
  Sex: Female
  Weight: 84.35 kg

DRUGS (8)
  1. SUTENT [Suspect]
     Active Substance: SUNITINIB MALATE
     Dosage: 37.5 MG, CYCLIC (DAILY THREE CAPSULES OF 12.5 MG EACH TOGETHER)
     Route: 048
     Dates: start: 201301, end: 20141001
  2. ZESTRIL [Concomitant]
     Active Substance: LISINOPRIL
     Dosage: 20 MG, 2X/DAY
     Route: 048
  3. SUTENT [Suspect]
     Active Substance: SUNITINIB MALATE
     Indication: RENAL CELL CARCINOMA
     Dosage: 50 MG, CYCLIC (ONCE A DAY FOR 4 WEEKS AND 2 WEEKS OF WASH OUT PHASE)
     Route: 048
     Dates: start: 201209
  4. ZOCOR [Concomitant]
     Active Substance: SIMVASTATIN
     Dosage: 40 MG, 1X/DAY
     Route: 048
  5. SYNTHROID [Concomitant]
     Active Substance: LEVOTHYROXINE SODIUM
     Dosage: 112 UG, 1X/DAY
     Route: 048
  6. MICROZIDE [Concomitant]
     Active Substance: HYDROCHLOROTHIAZIDE
     Dosage: 12.5 MG, 1X/DAY
     Route: 048
  7. PRINIVIL [Concomitant]
     Active Substance: LISINOPRIL
     Dosage: 20 MG, 2X/DAY
     Route: 048
  8. ELOCON [Concomitant]
     Active Substance: MOMETASONE FUROATE
     Dosage: 0.1 %, 2X/DAY

REACTIONS (6)
  - Nausea [Unknown]
  - Renal cell carcinoma [Unknown]
  - Hypertension [Unknown]
  - Cough [Unknown]
  - Diarrhoea [Unknown]
  - Disease progression [Unknown]

NARRATIVE: CASE EVENT DATE: 2012
